FAERS Safety Report 5526050-X (Version None)
Quarter: 2007Q4

REPORT INFORMATION
  Report Type: 
  Country: None (occurrence: None)
  Receive Date: 20071120
  Receipt Date: 20071106
  Transmission Date: 20080405
  Serious: Yes (Life-Threatening, Hospitalization, Other)
  Sender: FDA-Public Use
  Company Number: 020235

PATIENT
  Age: 28 Year
  Sex: Male

DRUGS (2)
  1. IBUPROFEN [Suspect]
     Indication: INTENTIONAL OVERDOSE
     Dosage: ONCE; ORAL
     Route: 048
  2. ACETAMINOPHEN [Suspect]
     Indication: INTENTIONAL OVERDOSE
     Dosage: 250 G, ONCE; ORAL
     Route: 048

REACTIONS (18)
  - ACUTE HEPATIC FAILURE [None]
  - AGITATION [None]
  - COAGULOPATHY [None]
  - CONTINUOUS HAEMODIAFILTRATION [None]
  - DIALYSIS [None]
  - DRUG TOXICITY [None]
  - GASTROINTESTINAL INFLAMMATION [None]
  - GASTROINTESTINAL NECROSIS [None]
  - GASTROINTESTINAL OEDEMA [None]
  - HAEMODYNAMIC INSTABILITY [None]
  - HEPATIC NECROSIS [None]
  - HYPOTENSION [None]
  - LARGE INTESTINAL HAEMORRHAGE [None]
  - LIVER TRANSPLANT [None]
  - METABOLIC ACIDOSIS [None]
  - MULTIPLE DRUG OVERDOSE INTENTIONAL [None]
  - RENAL FAILURE ACUTE [None]
  - RHABDOMYOLYSIS [None]
